FAERS Safety Report 23659191 (Version 2)
Quarter: 2025Q2

REPORT INFORMATION
  Report Type: Spontaneous
  Country: IT (occurrence: IT)
  Receive Date: 20240321
  Receipt Date: 20250416
  Transmission Date: 20250716
  Serious: Yes (Hospitalization)
  Sender: EISAI
  Company Number: None

PATIENT
  Sex: Female

DRUGS (4)
  1. LENVIMA [Suspect]
     Active Substance: LENVATINIB
     Indication: Lip and/or oral cavity cancer
     Dates: start: 20220503, end: 20240104
  2. BUPROPION HYDROCHLORIDE [Concomitant]
     Active Substance: BUPROPION HYDROCHLORIDE
     Indication: Depression
  3. ASPIRIN [Concomitant]
     Active Substance: ASPIRIN
     Indication: Cerebral ischaemia
     Dosage: 100 MG - 1 CP/DIE
  4. CIPRALEX [Concomitant]
     Active Substance: ESCITALOPRAM OXALATE
     Indication: Depression
     Dosage: 20MG/ML - 8 DROPS PER DAY

REACTIONS (5)
  - Osteonecrosis of jaw [Recovering/Resolving]
  - Epistaxis [Recovered/Resolved]
  - Haematuria [Recovered/Resolved]
  - Palmar-plantar erythrodysaesthesia syndrome [Recovered/Resolved]
  - Strangury [Recovered/Resolved]

NARRATIVE: CASE EVENT DATE: 20220530
